FAERS Safety Report 10111555 (Version 1)
Quarter: 2014Q2

REPORT INFORMATION
  Report Type: Report from Study
  Country: US (occurrence: US)
  Receive Date: 20140425
  Receipt Date: 20140425
  Transmission Date: 20141212
  Serious: Yes (Hospitalization, Other)
  Sender: FDA-Public Use
  Company Number: PHHY2014US048802

PATIENT
  Age: 62 Year
  Sex: Female

DRUGS (16)
  1. 5-FLUOROURACIL [Suspect]
     Dates: start: 20060622
  2. RITUXIMAB [Suspect]
     Route: 042
     Dates: start: 20060622
  3. MAXALT [Concomitant]
     Dosage: 10 MG, PRN
     Route: 048
  4. LYRICA [Concomitant]
     Dosage: 150 MG, QD
     Route: 048
  5. CYMBALTA [Concomitant]
     Dosage: 20 MG, QD
     Route: 048
  6. ACTIVELLA [Concomitant]
     Dosage: 40 MG, QD
     Route: 048
  7. NEXIUM//ESOMEPRAZOLE MAGNESIUM [Concomitant]
     Dosage: 40 MG, QD
     Route: 048
  8. HYDROXYCHLOROQUINE [Concomitant]
     Dosage: 400 MG, QD
     Route: 048
  9. PREDNISONE [Concomitant]
     Dosage: 15 MG, QD
     Route: 048
  10. CELEXA [Concomitant]
     Dosage: 30 MG, QD
     Route: 048
  11. SYNTHROID [Concomitant]
     Dosage: 125 UG, QD
     Route: 048
  12. MOBIC [Concomitant]
     Dosage: 15 MG, QD
  13. PLAQUENIL [Concomitant]
     Dosage: 200 MG, BID
  14. LEVOXYL [Concomitant]
     Dosage: 0.125 MG, UNK
  15. RHINOCORT (BUDESONIDE) [Concomitant]
     Dosage: 2 DF, QD
  16. ESTRADIOL + NORETHISTERONE ACETATE [Concomitant]
     Dosage: 0.6 MG, QD

REACTIONS (12)
  - Diarrhoea [Unknown]
  - Adrenal insufficiency [Unknown]
  - Polyp [Unknown]
  - Gastrooesophageal reflux disease [Unknown]
  - Lupus enteritis [Recovered/Resolved]
  - Gastritis [Unknown]
  - Mucosal atrophy [Unknown]
  - Abdominal pain [Unknown]
  - Pain [Unknown]
  - Pyrexia [Unknown]
  - Nausea [Unknown]
  - Flatulence [Unknown]
